FAERS Safety Report 7894361 (Version 4)
Quarter: 2014Q4

REPORT INFORMATION
  Report Type: Report from Study
  Country: US (occurrence: US)
  Receive Date: 20110412
  Receipt Date: 20141010
  Transmission Date: 20150529
  Serious: Yes (Hospitalization, Other)
  Sender: FDA-Public Use
  Company Number: US-BIOGENIDEC-2011BI012884

PATIENT
  Age: 61 Year
  Sex: Male

DRUGS (2)
  1. AVONEX [Suspect]
     Active Substance: INTERFERON BETA-1A
     Indication: MULTIPLE SCLEROSIS
     Route: 030
     Dates: start: 20010928
  2. AVONEX [Suspect]
     Active Substance: INTERFERON BETA-1A
     Indication: MULTIPLE SCLEROSIS
     Route: 030
     Dates: start: 200808

REACTIONS (7)
  - Benign gastric neoplasm [Recovered/Resolved]
  - Autoimmune disorder [Not Recovered/Not Resolved]
  - Lung disorder [Not Recovered/Not Resolved]
  - Memory impairment [Not Recovered/Not Resolved]
  - Benign lung neoplasm [Recovered/Resolved]
  - Headache [Recovered/Resolved with Sequelae]
  - Influenza like illness [Recovered/Resolved with Sequelae]

NARRATIVE: CASE EVENT DATE: 20010928
